FAERS Safety Report 9734566 (Version 2)
Quarter: 2013Q4

REPORT INFORMATION
  Report Type: Report from Study
  Country: US (occurrence: US)
  Receive Date: 20131206
  Receipt Date: 20131206
  Transmission Date: 20140711
  Serious: Yes (Hospitalization, Other)
  Sender: FDA-Public Use
  Company Number: US-BRISTOL-MYERS SQUIBB COMPANY-15724594

PATIENT
  Age: 63 Year
  Sex: Female
  Weight: 68.2 kg

DRUGS (3)
  1. IXEMPRA [Suspect]
     Indication: ENDOMETRIAL CANCER
     Dosage: 30MG/M2 OVER 1 HR ON DAY 1 X 6 CYCLES?COURSES:5
     Route: 042
     Dates: start: 20101207, end: 20110330
  2. CARBOPLATIN [Suspect]
     Indication: ENDOMETRIAL CANCER
     Dosage: AUC:6 OVER 30 MIN ON DAY 1 X 6CYCLES?COURSES:5
     Route: 042
     Dates: start: 20101207, end: 20110330
  3. BEVACIZUMAB [Suspect]
     Indication: ENDOMETRIAL CANCER
     Dosage: 15MG/KG OVER 30-90MIN ON DAY 1?COURSES:5
     Route: 042
     Dates: start: 20101207, end: 20110330

REACTIONS (4)
  - Presyncope [Recovered/Resolved]
  - Anaemia [Recovered/Resolved]
  - Constipation [Recovered/Resolved]
  - Hypokalaemia [Recovered/Resolved]
